FAERS Safety Report 5251818-7 (Version None)
Quarter: 2007Q1

REPORT INFORMATION
  Report Type: 
  Country: None (occurrence: None)
  Receive Date: 20070228
  Receipt Date: 20070216
  Transmission Date: 20070707
  Serious: Yes (Other)
  Sender: FDA-Public Use
  Company Number: US-PFIZER INC-2007012659

PATIENT
  Age: 2 Month
  Sex: Female

DRUGS (5)
  1. AZITHROMYCIN [Suspect]
     Indication: PERTUSSIS
  2. RANITIDINE [Concomitant]
  3. METOCLOPRAMIDE [Concomitant]
  4. IRON [Concomitant]
  5. VITAMIN CAP [Concomitant]

REACTIONS (1)
  - OBSTRUCTION GASTRIC [None]
